FAERS Safety Report 5631890-2 (Version None)
Quarter: 2008Q1

REPORT INFORMATION
  Report Type: 
  Country: None (occurrence: None)
  Receive Date: 20080220
  Receipt Date: 20080209
  Transmission Date: 20080703
  Serious: Yes (Hospitalization)
  Sender: FDA-Public Use
  Company Number: FR-AMGEN-UK264986

PATIENT
  Sex: Male

DRUGS (4)
  1. PANITUMUMAB [Suspect]
     Indication: COLORECTAL CANCER
     Route: 042
     Dates: start: 20080130
  2. LEUCOVORIN CALCIUM [Concomitant]
     Dates: start: 20080130
  3. FLUOROURACIL [Concomitant]
     Dates: start: 20080130
  4. IRINOTECAN [Concomitant]
     Dates: start: 20080130

REACTIONS (2)
  - ANOREXIA [None]
  - DEPRESSION [None]
